FAERS Safety Report 10764805 (Version 2)
Quarter: 2016Q2

REPORT INFORMATION
  Report Type: Spontaneous
  Country: GB (occurrence: GB)
  Receive Date: 20150205
  Receipt Date: 20160617
  Transmission Date: 20160815
  Serious: Yes (Death, Life-Threatening, Hospitalization)
  Sender: FDA-Public Use
  Company Number: GB-UCBSA-2014017241

PATIENT
  Age: 58 Year
  Sex: Female

DRUGS (1)
  1. NEUPRO [Suspect]
     Active Substance: ROTIGOTINE
     Indication: PARKINSON^S DISEASE
     Dosage: UNKNOWN DOSE

REACTIONS (2)
  - Death [Fatal]
  - Rash generalised [Recovering/Resolving]

NARRATIVE: CASE EVENT DATE: 201409
